FAERS Safety Report 4974606-5 (Version None)
Quarter: 2006Q2

REPORT INFORMATION
  Report Type: 
  Country: None (occurrence: None)
  Receive Date: 20060410
  Receipt Date: 20060322
  Transmission Date: 20061013
  Serious: Yes (Hospitalization, Other)
  Sender: FDA-Public Use
  Company Number: FR200603006008

PATIENT
  Age: 78 Year
  Sex: Female

DRUGS (2)
  1. FORTEO [Suspect]
     Indication: OSTEOPOROSIS
     Dosage: 20 UG, DAILY (1/D), SUBCUTANEOUS
     Route: 058
     Dates: start: 20050215
  2. FORTEO [Concomitant]

REACTIONS (4)
  - DYSPNOEA [None]
  - NERVE COMPRESSION [None]
  - PAIN IN EXTREMITY [None]
  - THROMBOPHLEBITIS [None]
